FAERS Safety Report 6627756-1 (Version None)
Quarter: 2010Q1

REPORT INFORMATION
  Report Type: 
  Country: None (occurrence: None)
  Receive Date: 20100311
  Receipt Date: 20100308
  Transmission Date: 20100710
  Serious: Yes (Death)
  Sender: FDA-Public Use
  Company Number: PHHY2010CA09976

PATIENT
  Sex: Male

DRUGS (13)
  1. EXJADE [Suspect]
     Indication: MYELODYSPLASTIC SYNDROME
     Dosage: 1500 MG, QD
     Route: 048
  2. FUROSEMIDE [Concomitant]
     Dosage: 20 MG, UNK
  3. METOPROLOL [Concomitant]
     Dosage: 25 MG, UNK
  4. COZAAR [Concomitant]
     Dosage: 25 MG, UNK
  5. SIMVASTATIN [Concomitant]
     Dosage: 40 MG, UNK
  6. SPIRONOLACTONE [Concomitant]
     Dosage: 25 MG, UNK
  7. LANSOPRAZOLE [Concomitant]
     Dosage: 30 MG, UNK
  8. FLOMAX [Concomitant]
     Dosage: 0.4 MG, UNK
  9. CITALOPRAM HYDROBROMIDE [Concomitant]
     Dosage: 20 MG, UNK
  10. AMIODARONE HCL [Concomitant]
     Dosage: 200 MG, UNK
  11. LYRICA [Concomitant]
     Dosage: 50 MG, UNK
  12. SOFLAX [Concomitant]
     Dosage: 100 MG, PRN
  13. ASPIRIN [Concomitant]
     Dosage: 81 MG, UNK

REACTIONS (3)
  - DEATH [None]
  - DYSPHAGIA [None]
  - TREATMENT NONCOMPLIANCE [None]
